FAERS Safety Report 9563603 (Version 1)
Quarter: 2013Q3

REPORT INFORMATION
  Report Type: Spontaneous
  Country: DE (occurrence: None)
  Receive Date: 20130926
  Receipt Date: 20130926
  Transmission Date: 20140515
  Serious: Yes (Hospitalization, Other)
  Sender: FDA-Public Use
  Company Number: FK201304299

PATIENT
  Age: 1 Year
  Sex: Male

DRUGS (1)
  1. DEXAMETHASONE INJECTION (MANUFACTURER UNKNOWN) (DEXAMETHASONE SODIUM PHOSPHATE) (DEMXAMETHASONE SODIUM PHOSPHATE) [Suspect]
     Indication: PROPHYLAXIS

REACTIONS (16)
  - Encephalopathy [None]
  - Central nervous system lesion [None]
  - Foetal exposure during pregnancy [None]
  - Vomiting [None]
  - Hyponatraemia [None]
  - Hyperkalaemia [None]
  - 17-hydroxyprogesterone increased [None]
  - Pyrexia [None]
  - Diarrhoea [None]
  - Hypoglycaemia [None]
  - Pupillary reflex impaired [None]
  - Eye movement disorder [None]
  - Eye oedema [None]
  - Hemianopia [None]
  - Hemiparesis [None]
  - Hyperreflexia [None]
